FAERS Safety Report 9832823 (Version 2)
Quarter: 2014Q1

REPORT INFORMATION
  Report Type: Report from Study
  Country: BE (occurrence: BE)
  Receive Date: 20140121
  Receipt Date: 20140219
  Transmission Date: 20141002
  Serious: Yes (Hospitalization)
  Sender: FDA-Public Use
  Company Number: BE-VIIV HEALTHCARE LIMITED-B0961747A

PATIENT
  Age: 81 Year
  Sex: Male
  Weight: 79 kg

DRUGS (11)
  1. NO THERAPY-VIIV [Suspect]
     Indication: HIV INFECTION
  2. TRIZIVIR [Suspect]
     Dosage: 1TAB TWICE PER DAY
     Dates: start: 20100126
  3. PREZISTA [Suspect]
     Dosage: 600MG TWICE PER DAY
     Dates: start: 20120626
  4. NORVIR [Suspect]
     Dosage: 100MG TWICE PER DAY
     Dates: start: 20120626
  5. RALTEGRAVIR [Suspect]
     Dosage: 400MG TWICE PER DAY
     Dates: start: 20100126
  6. CARVEDILOL [Concomitant]
     Indication: PORTAL HYPERTENSION
     Route: 048
     Dates: start: 20121211
  7. COVERSYL [Concomitant]
     Indication: HYPERTENSION
     Route: 048
     Dates: start: 20131218
  8. TOFRANIL [Concomitant]
     Indication: RESTLESS LEGS SYNDROME
     Route: 048
     Dates: start: 20131028
  9. GINKGO BILOBA [Concomitant]
     Indication: CEREBELLAR COGNITIVE AFFECTIVE SYNDROME
     Route: 048
     Dates: start: 20131001
  10. LORAZEPAM [Concomitant]
     Indication: INSOMNIA
     Route: 048
  11. LOSARTAN [Concomitant]
     Indication: HYPERTENSION
     Route: 048
     Dates: start: 20131212

REACTIONS (1)
  - Myocardial infarction [Recovered/Resolved]
